FAERS Safety Report 7997828-8 (Version None)
Quarter: 2011Q4

REPORT INFORMATION
  Report Type: 
  Country: None (occurrence: None)
  Receive Date: 20111221
  Receipt Date: 20111208
  Transmission Date: 20120403
  Serious: Yes (Other)
  Sender: FDA-Public Use
  Company Number: PHHY2011AU107548

PATIENT

DRUGS (2)
  1. LANREOTIDE [Suspect]
  2. SANDOSTATIN [Suspect]

REACTIONS (1)
  - NONSPECIFIC REACTION [None]
